FAERS Safety Report 12525795 (Version 1)
Quarter: 2016Q3

REPORT INFORMATION
  Report Type: Report from Study
  Country: US (occurrence: US)
  Receive Date: 20160705
  Receipt Date: 20160705
  Transmission Date: 20161109
  Serious: Yes (Death)
  Sender: FDA-Public Use
  Company Number: US-ASTRAZENECA-2016SE70883

PATIENT
  Sex: Male

DRUGS (3)
  1. GILOPRAF [Concomitant]
  2. ACETAMINOPHEN\HYDROCODONE BITARTRATE [Concomitant]
     Active Substance: ACETAMINOPHEN\HYDROCODONE BITARTRATE
  3. IRESSA [Suspect]
     Active Substance: GEFITINIB
     Route: 048
     Dates: start: 20151120

REACTIONS (1)
  - Death [Fatal]
